FAERS Safety Report 4285945-8 (Version None)
Quarter: 2004Q1

REPORT INFORMATION
  Report Type: 
  Country: None (occurrence: None)
  Receive Date: 20040203
  Receipt Date: 20040121
  Transmission Date: 20041129
  Serious: Yes (Hospitalization, Other)
  Sender: FDA-Public Use
  Company Number: 2004004485

PATIENT
  Sex: Male

DRUGS (1)
  1. NORVASC [Suspect]
     Indication: HYPERTENSION
     Dosage: UNKNOWN (UNKNOWN), UNKNOWN
     Route: 065

REACTIONS (2)
  - DIALYSIS [None]
  - RENAL FAILURE CHRONIC [None]
